FAERS Safety Report 12845540 (Version 2)
Quarter: 2018Q2

REPORT INFORMATION
  Report Type: Spontaneous
  Country: US (occurrence: US)
  Receive Date: 20161013
  Receipt Date: 20180516
  Transmission Date: 20180711
  Serious: No
  Sender: FDA-Public Use
  Company Number: US-JAZZ-2016-US-013817

PATIENT
  Sex: Male

DRUGS (34)
  1. PROPRANOLOL ER [Concomitant]
     Active Substance: PROPRANOLOL HYDROCHLORIDE
  2. TESTOSTERONE. [Concomitant]
     Active Substance: TESTOSTERONE
  3. AMBIEN [Concomitant]
     Active Substance: ZOLPIDEM TARTRATE
  4. CELEBREX [Concomitant]
     Active Substance: CELECOXIB
  5. OMEPRAZOLE DR [Concomitant]
     Active Substance: OMEPRAZOLE
  6. MELATONIN [Concomitant]
     Active Substance: MELATONIN
  7. SENNOSIDE [Concomitant]
     Active Substance: SENNOSIDES
  8. VALIUM [Concomitant]
     Active Substance: DIAZEPAM
  9. MORPHINE SULF CR [Concomitant]
  10. XYREM [Suspect]
     Active Substance: SODIUM OXYBATE
     Indication: PAIN
     Dosage: 3 G, BID
     Route: 048
     Dates: start: 201010, end: 2010
  11. CLINDAMYCIN HCL [Concomitant]
     Active Substance: CLINDAMYCIN HYDROCHLORIDE
  12. ZINC. [Concomitant]
     Active Substance: ZINC
  13. VITAMIN D [Concomitant]
     Active Substance: CHOLECALCIFEROL
  14. FENTANYL. [Concomitant]
     Active Substance: FENTANYL
  15. MIRTAZAPINE. [Concomitant]
     Active Substance: MIRTAZAPINE
  16. NORTRIPTYLINE HCL [Concomitant]
     Active Substance: NORTRIPTYLINE HYDROCHLORIDE
  17. CYMBALTA [Concomitant]
     Active Substance: DULOXETINE HYDROCHLORIDE
  18. IBUPROFEN IB [Concomitant]
     Active Substance: IBUPROFEN
  19. XYREM [Suspect]
     Active Substance: SODIUM OXYBATE
     Dosage: 4 G, SECOND DOSE
     Route: 048
     Dates: start: 201407
  20. FISH OIL [Concomitant]
     Active Substance: FISH OIL
  21. HYDROMORPHONE [Concomitant]
     Active Substance: HYDROMORPHONE
  22. XYREM [Suspect]
     Active Substance: SODIUM OXYBATE
     Dosage: 5 G, FIRST DOSE
     Route: 048
     Dates: start: 201407
  23. VIIBRYD [Concomitant]
     Active Substance: VILAZODONE HYDROCHLORIDE
  24. XYREM [Suspect]
     Active Substance: SODIUM OXYBATE
     Dosage: DOSE ADJUSTMENTS
     Route: 048
     Dates: start: 201012, end: 201407
  25. TRILEPTAL [Concomitant]
     Active Substance: OXCARBAZEPINE
  26. DOCUSATE CALCIUM. [Concomitant]
     Active Substance: DOCUSATE CALCIUM
  27. DHEA [Concomitant]
     Active Substance: PRASTERONE
  28. ZANAFLEX [Concomitant]
     Active Substance: TIZANIDINE HYDROCHLORIDE
  29. N-ACETYL-L-CYSTEINE [Concomitant]
     Active Substance: ACETYLCYSTEINE
  30. MS CONTIN [Concomitant]
     Active Substance: MORPHINE SULFATE
  31. OXYCODONE HYDROCHLORIDE. [Concomitant]
     Active Substance: OXYCODONE HYDROCHLORIDE
  32. TOPIRAMATE. [Concomitant]
     Active Substance: TOPIRAMATE
  33. BACLOFEN. [Concomitant]
     Active Substance: BACLOFEN
  34. DIAZEPAM. [Concomitant]
     Active Substance: DIAZEPAM

REACTIONS (1)
  - Memory impairment [Not Recovered/Not Resolved]
